FAERS Safety Report 4639053-4 (Version None)
Quarter: 2005Q2

REPORT INFORMATION
  Report Type: 
  Country: None (occurrence: None)
  Receive Date: 20050415
  Receipt Date: 20050325
  Transmission Date: 20051028
  Serious: Yes (Hospitalization)
  Sender: FDA-Public Use
  Company Number: JP_041205510

PATIENT
  Age: 40 Year
  Sex: Male
  Weight: 59 kg

DRUGS (2)
  1. GEMZAR [Suspect]
     Indication: PANCREATIC CARCINOMA
     Dosage: 1000 MG/M2 OTHER
     Route: 050
     Dates: start: 20031029, end: 20031224
  2. VOLTAREN [Concomitant]

REACTIONS (2)
  - CHOLANGITIS [None]
  - JAUNDICE CHOLESTATIC [None]
